FAERS Safety Report 8520745-1 (Version None)
Quarter: 2012Q3

REPORT INFORMATION
  Report Type: 
  Country: None (occurrence: None)
  Receive Date: 20120719
  Receipt Date: 20120716
  Transmission Date: 20120928
  Serious: No
  Sender: FDA-Public Use
  Company Number: GB-SANOFI-AVENTIS-2011SA073244

PATIENT
  Sex: Female
  Weight: 101 kg

DRUGS (1)
  1. ARAVA [Suspect]
     Dosage: ROUTE: THROUGH CONCEPTION.

REACTIONS (1)
  - EXPOSURE VIA FATHER [None]
